FAERS Safety Report 9103335 (Version 1)
Quarter: 2013Q1

REPORT INFORMATION
  Report Type: Spontaneous
  Country: FR (occurrence: FR)
  Receive Date: 20130219
  Receipt Date: 20130219
  Transmission Date: 20140127
  Serious: Yes (Hospitalization)
  Sender: FDA-Public Use
  Company Number: FR-PFIZER INC-2013059643

PATIENT
  Age: 68 Year
  Sex: Male

DRUGS (3)
  1. CAMPTO [Suspect]
     Indication: RECTAL ADENOCARCINOMA
     Dosage: 180 MG/M2, EVERY 2 WEEKS
     Route: 042
     Dates: start: 20120412, end: 20120412
  2. FLUOROURACIL [Concomitant]
     Indication: RECTAL ADENOCARCINOMA
  3. FOLINIC ACID [Concomitant]
     Indication: RECTAL ADENOCARCINOMA

REACTIONS (1)
  - Febrile bone marrow aplasia [Recovered/Resolved]
